FAERS Safety Report 4836540-0 (Version None)
Quarter: 2005Q4

REPORT INFORMATION
  Report Type: 
  Country: None (occurrence: None)
  Receive Date: 20051118
  Receipt Date: 20051107
  Transmission Date: 20060501
  Serious: Yes (Hospitalization, Other)
  Sender: FDA-Public Use
  Company Number: HQWYE498910NOV05

PATIENT
  Age: 30 Year
  Sex: Female

DRUGS (3)
  1. RAPAMUNE [Suspect]
     Indication: PROPHYLAXIS AGAINST TRANSPLANT REJECTION
     Dosage: 2 MG 1X PER 1 DAY
     Route: 048
     Dates: start: 20050614
  2. CYCLOSPORINE [Concomitant]
  3. PREDNISONE [Concomitant]

REACTIONS (4)
  - COMPLICATIONS OF TRANSPLANTED KIDNEY [None]
  - DRUG INEFFECTIVE [None]
  - KIDNEY TRANSPLANT REJECTION [None]
  - NEPHROPATHY TOXIC [None]
